FAERS Safety Report 11929476 (Version 1)
Quarter: 2016Q1

REPORT INFORMATION
  Report Type: Spontaneous
  Country: US (occurrence: None)
  Receive Date: 20160119
  Receipt Date: 20160119
  Transmission Date: 20160526
  Serious: No
  Sender: FDA-Public Use
  Company Number: None

PATIENT
  Age: 8 Year
  Sex: Male

DRUGS (4)
  1. BRIGHT SPARK [Suspect]
     Active Substance: HOMEOPATHICS
     Indication: IMPULSIVE BEHAVIOUR
     Route: 048
     Dates: start: 20160111, end: 20160116
  2. BRIGHT SPARK [Suspect]
     Active Substance: HOMEOPATHICS
     Indication: PSYCHOMOTOR HYPERACTIVITY
     Route: 048
     Dates: start: 20160111, end: 20160116
  3. MELATONIN [Concomitant]
     Active Substance: MELATONIN
  4. MULTI-VITAMIN CHEWABLE [Concomitant]

REACTIONS (5)
  - Crying [None]
  - Fear [None]
  - Nightmare [None]
  - Tremor [None]
  - Glassy eyes [None]

NARRATIVE: CASE EVENT DATE: 20160111
